FAERS Safety Report 8111274-8 (Version None)
Quarter: 2012Q1

REPORT INFORMATION
  Report Type: 
  Country: None (occurrence: None)
  Receive Date: 20120203
  Receipt Date: 20110802
  Transmission Date: 20120608
  Serious: No
  Sender: FDA-Public Use
  Company Number: US-GLAXOSMITHKLINE-A0939395A

PATIENT
  Age: 53 Year
  Sex: Male

DRUGS (1)
  1. LAMICTAL [Suspect]
     Indication: CONVULSION
     Dosage: 300MG TWICE PER DAY
     Route: 048
     Dates: start: 20110601

REACTIONS (2)
  - WRONG TECHNIQUE IN DRUG USAGE PROCESS [None]
  - OVERDOSE [None]
